FAERS Safety Report 21751871 (Version 1)
Quarter: 2022Q4

REPORT INFORMATION
  Report Type: Spontaneous
  Country: US (occurrence: US)
  Receive Date: 20221220
  Receipt Date: 20221220
  Transmission Date: 20230113
  Serious: No
  Sender: FDA-Public Use
  Company Number: US-ELI_LILLY_AND_COMPANY-US202212006603

PATIENT
  Age: 48 Year
  Sex: Male

DRUGS (1)
  1. HUMALOG [Suspect]
     Active Substance: INSULIN LISPRO
     Indication: Type 1 diabetes mellitus
     Dosage: UNK UNK, UNKNOWN
     Route: 058

REACTIONS (12)
  - Injection site abscess [Recovering/Resolving]
  - Injection site discharge [Recovering/Resolving]
  - Blood glucose increased [Recovering/Resolving]
  - Insomnia [Recovering/Resolving]
  - Product contamination microbial [Unknown]
  - Wrong technique in product usage process [Unknown]
  - Injection site mass [Recovering/Resolving]
  - Injection site pain [Recovering/Resolving]
  - Injection site irritation [Recovering/Resolving]
  - Injection site bruising [Recovering/Resolving]
  - Injection site oedema [Recovering/Resolving]
  - Injection site erythema [Recovering/Resolving]

NARRATIVE: CASE EVENT DATE: 20221115
